FAERS Safety Report 6958021 (Version 3)
Quarter: 2014Q3

REPORT INFORMATION
  Report Type: Spontaneous
  Country: KR (occurrence: KR)
  Receive Date: 20090401
  Receipt Date: 20140814
  Transmission Date: 20150326
  Serious: Yes (Other)
  Sender: FDA-Public Use
  Company Number: KR-ELI_LILLY_AND_COMPANY-KR200903005230

PATIENT
  Age: 36 Year
  Sex: Female

DRUGS (19)
  1. ZYPREXA [Suspect]
     Active Substance: OLANZAPINE
     Dosage: 15 MG, DAILY (1/D)
     Route: 065
  2. ZYPREXA [Suspect]
     Active Substance: OLANZAPINE
     Dosage: 20 MG, DAILY (1/D)
     Route: 065
  3. CLONAZEPAM. [Concomitant]
     Active Substance: CLONAZEPAM
     Dosage: 0.75 MG, DAILY (1/D)
     Route: 065
  4. ZOLPIDEM [Concomitant]
     Active Substance: ZOLPIDEM\ZOLPIDEM TARTRATE
     Dosage: 10 MG, DAILY (1/D)
     Route: 065
  5. CLONAZEPAM. [Concomitant]
     Active Substance: CLONAZEPAM
     Dosage: 1 G, DAILY (1/D)
     Route: 065
  6. CARBAMAZEPINE. [Concomitant]
     Active Substance: CARBAMAZEPINE
     Dosage: 300 MG, DAILY (1/D)
     Route: 065
  7. BENZTROPINE [Concomitant]
     Active Substance: BENZTROPINE
     Dosage: 1 MG, DAILY (1/D)
     Route: 065
  8. ZYPREXA [Suspect]
     Active Substance: OLANZAPINE
     Dosage: 15 MG, DAILY (1/D)
     Route: 065
  9. CLOZAPINE. [Concomitant]
     Active Substance: CLOZAPINE
     Dosage: 200 MG, DAILY (1/D)
     Route: 065
  10. ZYPREXA [Suspect]
     Active Substance: OLANZAPINE
     Dosage: 20 MG, DAILY (1/D)
     Route: 065
  11. CLOZAPINE. [Concomitant]
     Active Substance: CLOZAPINE
     Dosage: UNK, DAILY (1/D)
     Route: 065
  12. CLOZAPINE. [Concomitant]
     Active Substance: CLOZAPINE
     Dosage: 200 MG, DAILY (1/D)
     Route: 065
  13. GABAPENTIN. [Concomitant]
     Active Substance: GABAPENTIN
     Dosage: 600 MG, DAILY (1/D)
     Route: 065
  14. AMISULPRIDE [Concomitant]
     Active Substance: AMISULPRIDE
     Dosage: 1000 MG, DAILY (1/D)
     Route: 065
  15. ZYPREXA [Suspect]
     Active Substance: OLANZAPINE
     Indication: HALLUCINATION, AUDITORY
     Dosage: 5 MG, DAILY (1/D)
     Route: 065
  16. ZYPREXA [Suspect]
     Active Substance: OLANZAPINE
     Dosage: 30 MG, DAILY (1/D)
     Route: 065
  17. HALOPERIDOL. [Concomitant]
     Active Substance: HALOPERIDOL
     Dosage: 6 MG, DAILY (1/D)
     Route: 065
  18. ZYPREXA [Suspect]
     Active Substance: OLANZAPINE
     Dosage: 20 MG, DAILY (1/D)
     Route: 065
  19. ROPINIROLE. [Concomitant]
     Active Substance: ROPINIROLE
     Dosage: 1 MG, DAILY (1/D)
     Route: 065

REACTIONS (3)
  - Hallucination, auditory [Recovering/Resolving]
  - Restless legs syndrome [Recovered/Resolved]
  - Prescribed overdose [Unknown]
